FAERS Safety Report 4944003-7 (Version None)
Quarter: 2006Q1

REPORT INFORMATION
  Report Type: 
  Country: None (occurrence: None)
  Receive Date: 20060315
  Receipt Date: 20060307
  Transmission Date: 20060701
  Serious: Yes (Other)
  Sender: FDA-Public Use
  Company Number: CA-JNJFOC-20051106487

PATIENT
  Age: 47 Year
  Sex: Male
  Weight: 72 kg

DRUGS (5)
  1. REMICADE [Suspect]
     Route: 042
  2. REMICADE [Suspect]
     Indication: CROHN'S DISEASE
     Dosage: 5 MG/KG EVERY EIGHT TO TEN WEEKS
     Route: 042
  3. BUDESONIDE [Concomitant]
     Indication: CROHN'S DISEASE
     Route: 048
  4. FLAGYL [Concomitant]
     Indication: CROHN'S DISEASE
     Route: 048
  5. CIPROFLOXACIN [Concomitant]
     Indication: CROHN'S DISEASE
     Route: 048

REACTIONS (1)
  - PAPILLARY THYROID CANCER [None]
